FAERS Safety Report 5218190-X (Version None)
Quarter: 2007Q1

REPORT INFORMATION
  Report Type: 
  Country: None (occurrence: None)
  Receive Date: 20061130
  Receipt Date: 20060705
  Transmission Date: 20070707
  Serious: Yes (Other)
  Sender: FDA-Public Use
  Company Number: US200603000266

PATIENT
  Age: 27 Year
  Sex: Female
  Weight: 54.4 kg

DRUGS (10)
  1. ZYPREXA [Suspect]
     Dosage: 10 MG; 2.5 MG
     Dates: start: 20010801, end: 20021213
  2. ZYPREXA [Suspect]
     Dosage: 10 MG; 2.5 MG
     Dates: start: 20021213
  3. ARIPIPRAZOLE [Concomitant]
  4. RISPERIDONE [Concomitant]
  5. ZIPRASIDONE HCL [Concomitant]
  6. DIVALPROEX SODIUM [Concomitant]
  7. CITALOPRAM HYDROBROMIDE [Concomitant]
  8. FLUOXETINE (R-FLUOXETINE) [Concomitant]
  9. SERTRALINE [Concomitant]
  10. EFFEXOR [Concomitant]

REACTIONS (2)
  - PANCREATITIS [None]
  - WEIGHT INCREASED [None]
